FAERS Safety Report 9300101 (Version 9)
Quarter: 2015Q2

REPORT INFORMATION
  Report Type: Report from Study
  Country: US (occurrence: US)
  Receive Date: 20130521
  Receipt Date: 20150408
  Transmission Date: 20150821
  Serious: Yes (Hospitalization, Other)
  Sender: FDA-Public Use
  Company Number: US-ROCHE-1187957

PATIENT
  Age: 74 Year
  Sex: Female
  Weight: 83.08 kg

DRUGS (10)
  1. AVASTIN [Suspect]
     Active Substance: BEVACIZUMAB
     Route: 042
     Dates: start: 20120401
  2. HYDROCORTISONE. [Concomitant]
     Active Substance: HYDROCORTISONE
     Indication: BLOOD PRESSURE
  3. AVASTIN [Suspect]
     Active Substance: BEVACIZUMAB
     Indication: GLIOBLASTOMA MULTIFORME
     Route: 042
     Dates: start: 20110101
  4. FLUDROCORTISONE [Concomitant]
     Active Substance: FLUDROCORTISONE
     Indication: HYPOTENSION
     Route: 048
  5. AVASTIN [Suspect]
     Active Substance: BEVACIZUMAB
     Route: 042
     Dates: start: 201208
  6. LEVOTHYROXINE [Concomitant]
     Active Substance: LEVOTHYROXINE
     Indication: THYROID NEOPLASM
     Route: 048
  7. ALEVE [Concomitant]
     Active Substance: NAPROXEN SODIUM
  8. TYLENOL [Concomitant]
     Active Substance: ACETAMINOPHEN
  9. CORTISONE [Suspect]
     Active Substance: CORTISONE\HYDROCORTISONE
     Indication: BLOOD PRESSURE INCREASED
     Route: 065
  10. LEVETIRACETAM. [Concomitant]
     Active Substance: LEVETIRACETAM
     Indication: SEIZURE
     Route: 048
     Dates: start: 2012

REACTIONS (90)
  - Pyrexia [Recovered/Resolved]
  - Cerebrovascular accident [Recovered/Resolved]
  - Oropharyngeal pain [Not Recovered/Not Resolved]
  - Skin lesion [Not Recovered/Not Resolved]
  - Erythema [Not Recovered/Not Resolved]
  - Urinary tract infection [Not Recovered/Not Resolved]
  - Fibromyalgia [Not Recovered/Not Resolved]
  - Pollakiuria [Not Recovered/Not Resolved]
  - Back pain [Not Recovered/Not Resolved]
  - Speech disorder [Unknown]
  - Peripheral swelling [Unknown]
  - Skin haemorrhage [Not Recovered/Not Resolved]
  - Pain [Not Recovered/Not Resolved]
  - Aptyalism [Not Recovered/Not Resolved]
  - Blood pressure abnormal [Not Recovered/Not Resolved]
  - Blood pressure fluctuation [Unknown]
  - Drug dose omission [Unknown]
  - Personality change [Unknown]
  - Seizure [Recovered/Resolved]
  - Erythema [Unknown]
  - Amnesia [Not Recovered/Not Resolved]
  - Pain in extremity [Not Recovered/Not Resolved]
  - Dyspepsia [Not Recovered/Not Resolved]
  - Haemorrhagic diathesis [Not Recovered/Not Resolved]
  - Rash [Not Recovered/Not Resolved]
  - Weight increased [Recovering/Resolving]
  - Tinnitus [Unknown]
  - Pain [Recovered/Resolved]
  - Malaise [Not Recovered/Not Resolved]
  - Skin discolouration [Not Recovered/Not Resolved]
  - Rash [Not Recovered/Not Resolved]
  - Cystitis [Not Recovered/Not Resolved]
  - Arthropathy [Not Recovered/Not Resolved]
  - White blood cell count decreased [Not Recovered/Not Resolved]
  - Vulvovaginal candidiasis [Not Recovered/Not Resolved]
  - Haemorrhage subcutaneous [Not Recovered/Not Resolved]
  - Oropharyngeal pain [Not Recovered/Not Resolved]
  - Glossodynia [Not Recovered/Not Resolved]
  - Lower extremity mass [Unknown]
  - Hyperchlorhydria [Unknown]
  - Fall [Unknown]
  - Eyelid margin crusting [Not Recovered/Not Resolved]
  - Swollen tongue [Not Recovered/Not Resolved]
  - Skin abrasion [Not Recovered/Not Resolved]
  - Memory impairment [Recovering/Resolving]
  - Gait disturbance [Recovering/Resolving]
  - Gait disturbance [Unknown]
  - Dermatitis [Not Recovered/Not Resolved]
  - Dysphonia [Not Recovered/Not Resolved]
  - Diverticulitis [Unknown]
  - Hypertension [Recovered/Resolved]
  - Dysuria [Not Recovered/Not Resolved]
  - Dizziness [Not Recovered/Not Resolved]
  - Chest discomfort [Unknown]
  - Hypogeusia [Not Recovered/Not Resolved]
  - Epistaxis [Not Recovered/Not Resolved]
  - Vaginal discharge [Not Recovered/Not Resolved]
  - Blood test abnormal [Unknown]
  - Acne [Not Recovered/Not Resolved]
  - Rash generalised [Not Recovered/Not Resolved]
  - Blood glucose abnormal [Not Recovered/Not Resolved]
  - Infection [Recovered/Resolved]
  - Haemorrhoidal haemorrhage [Recovered/Resolved]
  - Dysphonia [Not Recovered/Not Resolved]
  - Rales [Not Recovered/Not Resolved]
  - Blood glucose decreased [Recovered/Resolved]
  - Hypotension [Not Recovered/Not Resolved]
  - Skin atrophy [Not Recovered/Not Resolved]
  - Tongue dry [Not Recovered/Not Resolved]
  - Tooth disorder [Unknown]
  - Asthenia [Unknown]
  - Memory impairment [Not Recovered/Not Resolved]
  - Musculoskeletal pain [Not Recovered/Not Resolved]
  - Lower extremity mass [Not Recovered/Not Resolved]
  - Tremor [Unknown]
  - Confusional state [Not Recovered/Not Resolved]
  - Dyspnoea [Not Recovered/Not Resolved]
  - Tongue discolouration [Not Recovered/Not Resolved]
  - Contusion [Not Recovered/Not Resolved]
  - Depression [Not Recovered/Not Resolved]
  - Headache [Not Recovered/Not Resolved]
  - Benign neoplasm of thyroid gland [Unknown]
  - Epistaxis [Not Recovered/Not Resolved]
  - Weight decreased [Not Recovered/Not Resolved]
  - Blood glucose fluctuation [Not Recovered/Not Resolved]
  - Mental impairment [Recovering/Resolving]
  - Dry throat [Not Recovered/Not Resolved]
  - Neuropathy peripheral [Unknown]
  - Ill-defined disorder [Unknown]
  - Pain [Unknown]

NARRATIVE: CASE EVENT DATE: 2012
